FAERS Safety Report 6306735-8 (Version None)
Quarter: 2009Q3

REPORT INFORMATION
  Report Type: 
  Country: None (occurrence: None)
  Receive Date: 20090812
  Receipt Date: 20090713
  Transmission Date: 20100115
  Serious: No
  Sender: FDA-Public Use
  Company Number: A0796671A

PATIENT
  Age: 58 Year
  Sex: Female

DRUGS (3)
  1. VERAMYST [Suspect]
     Dosage: 2SPR PER DAY
     Route: 045
     Dates: start: 20080101
  2. ROPINIROLE [Suspect]
     Indication: DRUG USE FOR UNKNOWN INDICATION
     Route: 065
  3. PREGADAY [Concomitant]

REACTIONS (8)
  - EYE SWELLING [None]
  - HYPERAESTHESIA [None]
  - HYPERSENSITIVITY [None]
  - MALAISE [None]
  - ORAL PAIN [None]
  - PRODUCT QUALITY ISSUE [None]
  - RHINALGIA [None]
  - SWELLING FACE [None]
